FAERS Safety Report 19004487 (Version 2)
Quarter: 2021Q1

REPORT INFORMATION
  Report Type: Other
  Country: HR (occurrence: HR)
  Receive Date: 20210312
  Receipt Date: 20210322
  Transmission Date: 20210420
  Serious: Yes (Hospitalization)
  Sender: FDA-Public Use
  Company Number: HR-ROCHE-2782812

PATIENT
  Age: 68 Year
  Sex: Male

DRUGS (12)
  1. CORDARONE [Concomitant]
     Active Substance: AMIODARONE HYDROCHLORIDE
  2. O2 [OXYGEN] [Concomitant]
     Active Substance: OXYGEN
     Indication: PROPHYLAXIS
  3. FURSEMIDE [Concomitant]
     Active Substance: FUROSEMIDE
     Indication: PROPHYLAXIS
  4. CIPLAR [Concomitant]
  5. BRALTUS ZONDA [Concomitant]
     Indication: PROPHYLAXIS
  6. GEMCITABINE. [Concomitant]
     Active Substance: GEMCITABINE
     Indication: NEOPLASM MALIGNANT
  7. CISPLATIN. [Concomitant]
     Active Substance: CISPLATIN
     Indication: NEOPLASM MALIGNANT
  8. ATEZOLIZUMAB. [Suspect]
     Active Substance: ATEZOLIZUMAB
     Indication: NON-SMALL CELL LUNG CANCER METASTATIC
     Dosage: ON 18/JAN/2021, HE RECEIVED MOST RECENT DOSE OF ATEZOLIZUMAB PRIOR TO SERIOUS ADVERSE EVENT
     Route: 041
     Dates: start: 20201228
  9. CONCOR [Concomitant]
     Active Substance: BISOPROLOL FUMARATE
  10. IPRATROPIJEV BROMID/SALBUTAMOL CIPLA [Concomitant]
     Indication: PROPHYLAXIS
  11. CISPLATINA [Concomitant]
     Active Substance: CISPLATIN
     Indication: NEOPLASM MALIGNANT
  12. GEMCITABINE. [Concomitant]
     Active Substance: GEMCITABINE
     Indication: NEOPLASM MALIGNANT

REACTIONS (3)
  - Pericarditis [Not Recovered/Not Resolved]
  - Pulmonary embolism [Not Recovered/Not Resolved]
  - Pneumonitis [Recovering/Resolving]

NARRATIVE: CASE EVENT DATE: 20210208
